FAERS Safety Report 9383921 (Version 1)
Quarter: 2013Q3

REPORT INFORMATION
  Report Type: Report from Study
  Country: DE (occurrence: DE)
  Receive Date: 20130705
  Receipt Date: 20130705
  Transmission Date: 20140515
  Serious: Yes (Hospitalization, Disabling)
  Sender: FDA-Public Use
  Company Number: DE-ROCHE-703794

PATIENT
  Age: 43 Year
  Sex: Male
  Weight: 78 kg

DRUGS (2)
  1. PEG-INTERFERON ALFA 2A [Suspect]
     Indication: CHRONIC HEPATITIS C
     Route: 058
  2. RIBAVIRIN [Suspect]
     Indication: CHRONIC HEPATITIS C
     Route: 065

REACTIONS (1)
  - Testis cancer [Recovered/Resolved with Sequelae]
